FAERS Safety Report 5805919-2 (Version None)
Quarter: 2008Q3

REPORT INFORMATION
  Report Type: 
  Country: None (occurrence: None)
  Receive Date: 20080708
  Receipt Date: 20080626
  Transmission Date: 20090109
  Serious: Yes (Other)
  Sender: FDA-Public Use
  Company Number: 235643J08USA

PATIENT
  Age: 43 Year
  Sex: Female
  Weight: 83.9154 kg

DRUGS (6)
  1. REBIF [Suspect]
     Indication: MULTIPLE SCLEROSIS
     Dosage: 44 MCG, 3 IN 1 WEEKS, SUBCUTANEOUS
     Route: 058
     Dates: start: 20020630
  2. ANTIDEPRESSANT (ANTIDEPRESSANTS) [Concomitant]
  3. DICLOFENAC SODIUM [Concomitant]
  4. ALLEGRA-D (ALLEGRA-D) [Concomitant]
  5. GLUCOSASMINE (GLUCOSAMINE) [Concomitant]
  6. ALEVE (CAPLET) [Concomitant]

REACTIONS (3)
  - INJECTION SITE MASS [None]
  - RETINAL DETACHMENT [None]
  - WEIGHT INCREASED [None]
